FAERS Safety Report 13407803 (Version 2)
Quarter: 2017Q2

REPORT INFORMATION
  Report Type: Report from Study
  Country: None (occurrence: US)
  Receive Date: 20170406
  Receipt Date: 20170407
  Transmission Date: 20170830
  Serious: Yes (Hospitalization)
  Sender: FDA-Public Use
  Company Number: US-ABBVIE-17K-163-1930463-00

PATIENT
  Age: 81 Year
  Sex: Female
  Weight: 49.03 kg

DRUGS (4)
  1. LISINOPRIL. [Concomitant]
     Active Substance: LISINOPRIL
     Indication: HYPERTENSION
  2. ARICEPT [Concomitant]
     Active Substance: DONEPEZIL HYDROCHLORIDE
     Indication: DEMENTIA
  3. HUMIRA [Suspect]
     Active Substance: ADALIMUMAB
     Indication: RHEUMATOID ARTHRITIS
     Route: 058
     Dates: start: 2001
  4. HUMIRA [Suspect]
     Active Substance: ADALIMUMAB
     Route: 058

REACTIONS (5)
  - Dehydration [Recovered/Resolved]
  - Influenza [Recovered/Resolved]
  - Clostridium difficile infection [Recovered/Resolved]
  - Urinary tract infection [Recovered/Resolved]
  - Blood albumin decreased [Recovered/Resolved]

NARRATIVE: CASE EVENT DATE: 201701
